FAERS Safety Report 13844483 (Version 3)
Quarter: 2017Q4

REPORT INFORMATION
  Report Type: Spontaneous
  Country: US (occurrence: US)
  Receive Date: 20170808
  Receipt Date: 20171009
  Transmission Date: 20180320
  Serious: Yes (Other)
  Sender: FDA-Public Use
  Company Number: US-BAUSCH-BL-2017-023251

PATIENT
  Age: 72 Year
  Sex: Male

DRUGS (3)
  1. XENAZINE [Suspect]
     Active Substance: TETRABENAZINE
     Indication: DYSTONIA
     Dosage: 2 TABLETS THREE TIMES A DAY
     Route: 048
     Dates: start: 20170608
  2. XENAZINE [Suspect]
     Active Substance: TETRABENAZINE
     Indication: TARDIVE DYSKINESIA
     Dosage: CURRENT DOSE TWO TABLETS TWO TIMES A DAY
     Route: 048
     Dates: start: 2017
  3. XENAZINE [Suspect]
     Active Substance: TETRABENAZINE
     Indication: CHRONIC TIC DISORDER
     Route: 048
     Dates: start: 201704

REACTIONS (3)
  - Off label use [Not Recovered/Not Resolved]
  - Surgery [Unknown]
  - Adverse event [Unknown]

NARRATIVE: CASE EVENT DATE: 2017
